FAERS Safety Report 5275257-8 (Version None)
Quarter: 2007Q1

REPORT INFORMATION
  Report Type: 
  Country: None (occurrence: None)
  Receive Date: 20070326
  Receipt Date: 20070322
  Transmission Date: 20070707
  Serious: Yes (Death)
  Sender: FDA-Public Use
  Company Number: US-BRISTOL-MYERS SQUIBB COMPANY-13633375

PATIENT
  Age: 63 Year
  Sex: Female

DRUGS (7)
  1. GLUCOVANCE [Suspect]
     Indication: DIABETES MELLITUS
     Route: 048
  2. STARLIX [Concomitant]
     Route: 048
  3. EFFEXOR [Concomitant]
     Dosage: TAKEN EVERY OTHER DAY
  4. LEXAPRO [Concomitant]
     Route: 048
  5. DETROL LA [Concomitant]
     Route: 048
  6. NOVOLOG [Concomitant]
     Route: 058
  7. MOBIC [Concomitant]
     Route: 048

REACTIONS (1)
  - ACUTE MYOCARDIAL INFARCTION [None]
